FAERS Safety Report 5426148-0 (Version None)
Quarter: 2007Q3

REPORT INFORMATION
  Report Type: 
  Country: None (occurrence: None)
  Receive Date: 20070827
  Receipt Date: 20070821
  Transmission Date: 20080115
  Serious: Yes (Hospitalization)
  Sender: FDA-Public Use
  Company Number: FR-ELI_LILLY_AND_COMPANY-FR200708004229

PATIENT
  Age: 34 Year
  Sex: Female

DRUGS (8)
  1. ZYPREXA [Suspect]
     Indication: DELUSION
     Dosage: 10 MG, 2/D
     Route: 048
     Dates: start: 20070619, end: 20070626
  2. TERCIAN [Concomitant]
     Dosage: 100 MG, 3/D
     Route: 048
     Dates: start: 20070619
  3. VITAMIN B1 AND B6 [Concomitant]
     Route: 048
     Dates: start: 20070619
  4. NICOBION [Concomitant]
     Dosage: UNK, UNK
     Route: 048
     Dates: start: 20070619
  5. NICOTINELL [Concomitant]
     Dosage: UNK, UNK
     Route: 048
     Dates: start: 20070621
  6. SULFARLEM [Concomitant]
     Dosage: UNK, UNK
     Route: 048
     Dates: start: 20070621
  7. ETHINYL ESTRADIOL AND LEVONORGESTREL [Concomitant]
     Route: 048
  8. NICOTINE [Concomitant]
     Route: 062
     Dates: start: 20070621

REACTIONS (3)
  - GAMMA-GLUTAMYLTRANSFERASE INCREASED [None]
  - HEPATIC STEATOSIS [None]
  - HEPATOCELLULAR DAMAGE [None]
